FAERS Safety Report 21696194 (Version 1)
Quarter: 2022Q4

REPORT INFORMATION
  Report Type: Spontaneous
  Country: US (occurrence: None)
  Receive Date: 20221207
  Receipt Date: 20221207
  Transmission Date: 20230112
  Serious: No
  Sender: FDA-Public Use
  Company Number: None

PATIENT
  Age: 79 Year
  Sex: Male

DRUGS (2)
  1. CARBAMAZEPINE [Suspect]
     Active Substance: CARBAMAZEPINE
     Indication: Bipolar disorder
     Dosage: FREQUENCY : TWICE A DAY;?
     Route: 048
     Dates: start: 20221112, end: 20221114
  2. GABAPENTIN [Suspect]
     Active Substance: GABAPENTIN
     Dosage: FREQUENCY : DAILY;?
     Route: 048
     Dates: start: 20201120, end: 20221114

REACTIONS (4)
  - Mental status changes [None]
  - Encephalopathy [None]
  - Confusional state [None]
  - Tic [None]

NARRATIVE: CASE EVENT DATE: 20221114
